FAERS Safety Report 5778599-2 (Version None)
Quarter: 2008Q2

REPORT INFORMATION
  Report Type: 
  Country: None (occurrence: None)
  Receive Date: 20080618
  Receipt Date: 20080618
  Transmission Date: 20081010
  Serious: Yes (Other)
  Sender: FDA-Public Use
  Company Number: None

PATIENT
  Sex: Male

DRUGS (7)
  1. REVLIMID [Suspect]
     Indication: MULTIPLE MYELOMA
     Dosage: 25MG DAILY 21D/28D PO
     Route: 048
  2. DEXAMETHASONE [Concomitant]
  3. HYDROCODONE BITARTRATE AND ACETAMINOPHEN [Concomitant]
  4. ALLOPURINOL [Concomitant]
  5. PRILOSEC [Concomitant]
  6. BACTRIM DS [Concomitant]
  7. CALCIUM GLUCONATE [Concomitant]

REACTIONS (1)
  - HYPERSENSITIVITY [None]
